FAERS Safety Report 9345986 (Version 1)
Quarter: 2013Q2

REPORT INFORMATION
  Report Type: Spontaneous
  Country: US (occurrence: US)
  Receive Date: 20130613
  Receipt Date: 20130613
  Transmission Date: 20140414
  Serious: Yes (Other)
  Sender: FDA-Public Use
  Company Number: US-JNJFOC-20130522837

PATIENT
  Age: 50 Year
  Sex: Female
  Weight: 68.04 kg

DRUGS (1)
  1. ORTHO TRI-CYCLEN LO [Suspect]
     Indication: ENDOMETRIOSIS
     Route: 048
     Dates: end: 201203

REACTIONS (4)
  - Ovarian cyst [Not Recovered/Not Resolved]
  - Metrorrhagia [Unknown]
  - Off label use [Unknown]
  - Therapeutic response unexpected [Unknown]
